FAERS Safety Report 8964011 (Version 2)
Quarter: 2013Q1

REPORT INFORMATION
  Report Type: Spontaneous
  Country: JP (occurrence: JP)
  Receive Date: 20121214
  Receipt Date: 20130204
  Transmission Date: 20140127
  Serious: Yes (Disabling)
  Sender: FDA-Public Use
  Company Number: JP-ELI_LILLY_AND_COMPANY-JP201210001607

PATIENT
  Age: 77 None
  Sex: Male
  Weight: 64 kg

DRUGS (1)
  1. GEMZAR [Suspect]
     Indication: BILE DUCT CANCER RECURRENT
     Dosage: 1.4 G, UNK
     Route: 042
     Dates: start: 20110308, end: 20120215

REACTIONS (2)
  - Thrombotic microangiopathy [Not Recovered/Not Resolved]
  - Nephrotic syndrome [Not Recovered/Not Resolved]
